FAERS Safety Report 21102450 (Version 3)
Quarter: 2022Q3

REPORT INFORMATION
  Report Type: Report from Study
  Country: US (occurrence: US)
  Receive Date: 20220719
  Receipt Date: 20220906
  Transmission Date: 20221026
  Serious: No
  Sender: FDA-Public Use
  Company Number: US-NOVARTISTESTPH-NVSC2022US163352

PATIENT
  Sex: Female

DRUGS (2)
  1. ENTRESTO [Suspect]
     Active Substance: SACUBITRIL\VALSARTAN
     Indication: Chronic left ventricular failure
     Dosage: 0.5 DOSAGE FROM, BID (1/2 TAB, 2X1 DAY)
     Route: 065
  2. ENTRESTO [Suspect]
     Active Substance: SACUBITRIL\VALSARTAN
     Dosage: 0.5 DOSAGE FROM, BID (1/2 TAB, 2X1 DAY)
     Route: 048
     Dates: start: 20220830

REACTIONS (3)
  - Hypotension [Unknown]
  - Prescribed underdose [Unknown]
  - Wrong technique in product usage process [Unknown]
